FAERS Safety Report 8366473-7 (Version None)
Quarter: 2012Q2

REPORT INFORMATION
  Report Type: 
  Country: None (occurrence: None)
  Receive Date: 20120517
  Receipt Date: 20120508
  Transmission Date: 20120825
  Serious: Yes (Hospitalization)
  Sender: FDA-Public Use
  Company Number: ES-SANOFI-AVENTIS-2012SA027752

PATIENT
  Age: 61 Year
  Sex: Male
  Weight: 75 kg

DRUGS (4)
  1. DOCETAXEL [Suspect]
     Route: 041
     Dates: start: 20111202, end: 20111202
  2. BLINDED THERAPY [Suspect]
     Indication: NON-SMALL CELL LUNG CANCER
     Route: 042
     Dates: start: 20111111, end: 20111111
  3. DOCETAXEL [Suspect]
     Indication: NON-SMALL CELL LUNG CANCER
     Route: 041
     Dates: start: 20111111, end: 20111111
  4. BLINDED THERAPY [Suspect]
     Route: 042
     Dates: start: 20111202, end: 20111202

REACTIONS (1)
  - SUPERIOR VENA CAVA SYNDROME [None]
